FAERS Safety Report 13930857 (Version 1)
Quarter: 2017Q3

REPORT INFORMATION
  Report Type: Spontaneous
  Country: GB (occurrence: GB)
  Receive Date: 20170901
  Receipt Date: 20170901
  Transmission Date: 20171127
  Serious: Yes (Hospitalization, Other)
  Sender: FDA-Public Use
  Company Number: GB-INTERNATIONAL MEDICATION SYSTEMS, LIMITED-2025497

PATIENT
  Age: 51 Year
  Sex: Female

DRUGS (1)
  1. LIDOCAINE 20 MG/ML [Suspect]
     Active Substance: LIDOCAINE
     Indication: NEURALGIA
     Route: 058
     Dates: start: 20170727, end: 20170727

REACTIONS (5)
  - Nausea [Recovered/Resolved]
  - Heart rate increased [Recovered/Resolved]
  - Incorrect dose administered [Unknown]
  - Dizziness [Recovered/Resolved]
  - Overdose [Unknown]

NARRATIVE: CASE EVENT DATE: 20170727
